FAERS Safety Report 17269397 (Version 4)
Quarter: 2020Q2

REPORT INFORMATION
  Report Type: Spontaneous
  Country: MX (occurrence: MX)
  Receive Date: 20200114
  Receipt Date: 20200615
  Transmission Date: 20200713
  Serious: Yes (Hospitalization, Disabling, Other)
  Sender: FDA-Public Use
  Company Number: MX-ASTRAZENECA-2020SE04278

PATIENT
  Age: 78 Year
  Sex: Male

DRUGS (5)
  1. CALQUENCE [Suspect]
     Active Substance: ACALABRUTINIB
     Indication: MANTLE CELL LYMPHOMA RECURRENT
     Route: 048
  2. APIXABAN [Concomitant]
     Active Substance: APIXABAN
  3. LEXOTAN [Concomitant]
     Active Substance: BROMAZEPAM
     Dosage: 3.0MG UNKNOWN
  4. TAFIL [Concomitant]
     Active Substance: ALPRAZOLAM
  5. EUTIROX [Concomitant]
     Active Substance: LEVOTHYROXINE SODIUM

REACTIONS (19)
  - Pollakiuria [Unknown]
  - Brain contusion [Unknown]
  - Fall [Unknown]
  - Brain injury [Unknown]
  - Dysuria [Unknown]
  - Head injury [Unknown]
  - Pyrexia [Unknown]
  - Shock [Unknown]
  - Neutropenia [Unknown]
  - Infection [Unknown]
  - CSF volume increased [Unknown]
  - Headache [Unknown]
  - Protein total increased [Unknown]
  - Off label use [Unknown]
  - Sepsis [Unknown]
  - Haemoptysis [Unknown]
  - Blindness [Unknown]
  - Urosepsis [Unknown]
  - Optic nerve disorder [Unknown]
